FAERS Safety Report 23905936 (Version 3)
Quarter: 2024Q3

REPORT INFORMATION
  Report Type: Report from Study
  Country: US (occurrence: US)
  Receive Date: 20240527
  Receipt Date: 20240701
  Transmission Date: 20241016
  Serious: Yes (Other)
  Sender: Unknown Manufacturer
  Company Number: US-MTPC-MTDA2024-0011037

PATIENT
  Sex: Female

DRUGS (2)
  1. RADICAVA ORS [Suspect]
     Active Substance: EDARAVONE
     Indication: Amyotrophic lateral sclerosis
     Dosage: STANDARD DOSING
     Route: 065
     Dates: start: 20240504
  2. RADICAVA ORS [Suspect]
     Active Substance: EDARAVONE
     Indication: Amyotrophic lateral sclerosis
     Dosage: STANDARD DOSING
     Route: 065
     Dates: start: 20240504

REACTIONS (2)
  - Hemiparesis [Unknown]
  - Muscular weakness [Not Recovered/Not Resolved]
